FAERS Safety Report 8891387 (Version 1)
Quarter: 2012Q4

REPORT INFORMATION
  Report Type: Spontaneous
  Country: US (occurrence: None)
  Receive Date: 20121105
  Receipt Date: 20121105
  Transmission Date: 20130627
  Serious: Yes (Hospitalization)
  Sender: FDA-Public Use
  Company Number: None

PATIENT
  Age: 53 Year
  Sex: Female
  Weight: 30.89 kg

DRUGS (1)
  1. REGADENOSON [Suspect]
     Indication: STRESS TEST
     Route: 042
     Dates: start: 20121029, end: 20121029

REACTIONS (2)
  - Petit mal epilepsy [None]
  - Unresponsive to stimuli [None]
